FAERS Safety Report 9282300 (Version 1)
Quarter: 2013Q2

REPORT INFORMATION
  Report Type: Spontaneous
  Country: US (occurrence: US)
  Receive Date: 20130510
  Receipt Date: 20130510
  Transmission Date: 20140414
  Serious: Yes (Hospitalization)
  Sender: FDA-Public Use
  Company Number: US-GENZYME-THYM-1003784

PATIENT
  Age: 39 Year
  Sex: Male

DRUGS (2)
  1. THYMOGLOBULIN [Suspect]
     Indication: RENAL TRANSPLANT
     Dosage: UNK
     Route: 065
     Dates: start: 20130417, end: 20130419
  2. IMMUNOSUPPRESSIVE AGENTS [Concomitant]
     Indication: RENAL TRANSPLANT
     Dosage: UNK, LOWER DOSES
     Route: 065

REACTIONS (3)
  - Cholecystitis [Unknown]
  - Colectomy [Unknown]
  - Clostridium difficile colitis [Not Recovered/Not Resolved]
